FAERS Safety Report 5289246-0 (Version None)
Quarter: 2007Q2

REPORT INFORMATION
  Report Type: 
  Country: None (occurrence: None)
  Receive Date: 20070404
  Receipt Date: 20070404
  Transmission Date: 20071010
  Serious: No
  Sender: FDA-Public Use
  Company Number: None

PATIENT
  Sex: Female

DRUGS (6)
  1. REVLIMID [Suspect]
     Indication: MYELODYSPLASTIC SYNDROME
     Dosage: 10MG DAILY FOR 28 DAYS PO
     Route: 048
  2. DILTIAZEM [Concomitant]
  3. LABETALOL HCL [Concomitant]
  4. PROCRIT [Concomitant]
  5. NIFEDIPINE [Concomitant]
  6. CALCITRIOL [Concomitant]

REACTIONS (1)
  - PANCYTOPENIA [None]
